FAERS Safety Report 24994187 (Version 3)
Quarter: 2025Q1

REPORT INFORMATION
  Report Type: Spontaneous
  Country: BE (occurrence: BE)
  Receive Date: 20250221
  Receipt Date: 20250329
  Transmission Date: 20250409
  Serious: Yes (Death, Other)
  Sender: AUROBINDO
  Company Number: BE-PFIZER INC-PV202500012585

PATIENT
  Age: 67 Year
  Sex: Female

DRUGS (14)
  1. CARBOPLATIN [Suspect]
     Active Substance: CARBOPLATIN
     Indication: Ovarian epithelial cancer
     Route: 065
     Dates: start: 2012
  2. CARBOPLATIN [Suspect]
     Active Substance: CARBOPLATIN
     Route: 065
     Dates: start: 2013
  3. CARBOPLATIN [Suspect]
     Active Substance: CARBOPLATIN
     Route: 065
     Dates: start: 2014
  4. CARBOPLATIN [Suspect]
     Active Substance: CARBOPLATIN
     Route: 065
     Dates: start: 2022, end: 202309
  5. PACLITAXEL [Suspect]
     Active Substance: PACLITAXEL
     Indication: Ovarian epithelial cancer
     Route: 065
     Dates: start: 2012
  6. PACLITAXEL [Suspect]
     Active Substance: PACLITAXEL
     Route: 065
     Dates: start: 2014
  7. DOXORUBICIN [Suspect]
     Active Substance: DOXORUBICIN
     Indication: Ovarian epithelial cancer
     Route: 065
     Dates: start: 2013
  8. DOXORUBICIN [Suspect]
     Active Substance: DOXORUBICIN
     Route: 065
     Dates: start: 202402
  9. AVASTIN [Suspect]
     Active Substance: BEVACIZUMAB
     Indication: Ovarian epithelial cancer
     Route: 065
     Dates: start: 202402
  10. FILGRASTIM [Suspect]
     Active Substance: FILGRASTIM
     Indication: Ovarian epithelial cancer
     Route: 065
     Dates: start: 2012
  11. TALAZOPARIB [Suspect]
     Active Substance: TALAZOPARIB
     Indication: Ovarian epithelial cancer
     Route: 065
     Dates: start: 202309
  12. OLAPARIB [Suspect]
     Active Substance: OLAPARIB
     Indication: Ovarian epithelial cancer
     Dosage: 60 MILLIGRAM, ONCE A DAY
     Route: 065
     Dates: start: 201504, end: 202305
  13. GRANULOCYTE COLONY-STIMULATING FACTOR NOS [Suspect]
     Active Substance: GRANULOCYTE COLONY-STIMULATING FACTOR NOS
     Indication: Ovarian epithelial cancer
     Route: 065
     Dates: start: 2012
  14. LENOGRASTIM [Suspect]
     Active Substance: LENOGRASTIM
     Indication: Ovarian epithelial cancer
     Route: 065
     Dates: start: 2012

REACTIONS (6)
  - Death [Fatal]
  - Second primary malignancy [Fatal]
  - Acute myeloid leukaemia [Fatal]
  - Myelodysplastic syndrome transformation [Unknown]
  - Off label use [Unknown]
  - Disseminated intravascular coagulation [Unknown]

NARRATIVE: CASE EVENT DATE: 20230901
